FAERS Safety Report 4828270-6 (Version None)
Quarter: 2005Q4

REPORT INFORMATION
  Report Type: 
  Country: None (occurrence: None)
  Receive Date: 20051114
  Receipt Date: 20051114
  Transmission Date: 20060501
  Serious: Yes (Other)
  Sender: FDA-Public Use
  Company Number: None

PATIENT
  Sex: Female

DRUGS (4)
  1. RITUXAN [Suspect]
     Indication: RHEUMATOID ARTHRITIS
     Dosage: 1000 MG X 2 DOSES IV; 500MG X 2 DOSES IV
     Route: 042
     Dates: start: 20040903, end: 20040923
  2. RITUXAN [Suspect]
     Indication: RHEUMATOID ARTHRITIS
     Dosage: 1000 MG X 2 DOSES IV; 500MG X 2 DOSES IV
     Route: 042
     Dates: start: 20050630, end: 20050718
  3. METHOTREXATE [Concomitant]
  4. FOLIC ACID [Concomitant]

REACTIONS (1)
  - PAPILLARY THYROID CANCER [None]
